FAERS Safety Report 24179235 (Version 1)
Quarter: 2024Q3

REPORT INFORMATION
  Report Type: Spontaneous
  Country: CN (occurrence: CN)
  Receive Date: 20240806
  Receipt Date: 20240806
  Transmission Date: 20241016
  Serious: Yes (Other)
  Sender: BAXTER
  Company Number: None

PATIENT
  Age: 80 Year
  Sex: Female
  Weight: 80 kg

DRUGS (8)
  1. CYCLOPHOSPHAMIDE [Suspect]
     Active Substance: CYCLOPHOSPHAMIDE
     Indication: Neoplasm malignant
     Dosage: 0. 6G, ONE TIME IN ONE DAY DILUTED WITH 0.9% SODIUM CHLORIDE INJECTION 250ML
     Route: 041
     Dates: start: 20240707, end: 20240707
  2. CYCLOPHOSPHAMIDE [Suspect]
     Active Substance: CYCLOPHOSPHAMIDE
     Indication: Diffuse large B-cell lymphoma
  3. DEXTROSE [Suspect]
     Active Substance: DEXTROSE\DEXTROSE MONOHYDRATE
     Indication: Medication dilution
     Dosage: 250 ML ONE TIME IN ONE DAY USED TO DILUTE PIRARUBICIN INJECTION 50 MG
     Route: 041
     Dates: start: 20240707, end: 20240707
  4. RITUXIMAB [Suspect]
     Active Substance: RITUXIMAB
     Indication: Diffuse large B-cell lymphoma
     Dosage: 400 MG ONE TIME IN ONE DAY
     Route: 041
     Dates: start: 20240707, end: 20240707
  5. RITUXIMAB [Suspect]
     Active Substance: RITUXIMAB
     Indication: Neoplasm malignant
  6. PIRARUBICIN HYDROCHLORIDE [Suspect]
     Active Substance: PIRARUBICIN HYDROCHLORIDE
     Indication: Neoplasm malignant
     Dosage: 50 MG,ONE TIME IN ONE DAY DILUED WITH 5% GLUCOSE INJECTION 250ML
     Route: 041
     Dates: start: 20240707, end: 20240707
  7. PIRARUBICIN HYDROCHLORIDE [Suspect]
     Active Substance: PIRARUBICIN HYDROCHLORIDE
     Indication: Diffuse large B-cell lymphoma
  8. SODIUM CHLORIDE [Suspect]
     Active Substance: SODIUM CHLORIDE
     Indication: Medication dilution
     Dosage: 250ML ONE TIME IN ONE DAY USED TO DILUTE CYCLOPHOSPHAMIDE 0.6G
     Route: 041
     Dates: start: 20240707, end: 20240707

REACTIONS (2)
  - Myelosuppression [Unknown]
  - Granulocytosis [Unknown]

NARRATIVE: CASE EVENT DATE: 20240717
